FAERS Safety Report 7722267-4 (Version None)
Quarter: 2011Q3

REPORT INFORMATION
  Report Type: 
  Country: None (occurrence: None)
  Receive Date: 20110831
  Receipt Date: 20110822
  Transmission Date: 20111222
  Serious: Yes (Other)
  Sender: FDA-Public Use
  Company Number: US-ELI_LILLY_AND_COMPANY-US200909006487

PATIENT
  Sex: Female

DRUGS (3)
  1. LEVEMIR [Concomitant]
     Dosage: 20 U, EACH EVENING
  2. HUMALOG [Suspect]
     Indication: DIABETES MELLITUS
     Dosage: UNK, 4/D
     Dates: start: 19950101
  3. HUMALOG [Suspect]
     Dosage: UNK, 4/D

REACTIONS (1)
  - RECTAL CANCER [None]
